FAERS Safety Report 10764337 (Version 7)
Quarter: 2015Q2

REPORT INFORMATION
  Report Type: Spontaneous
  Country: CA (occurrence: CA)
  Receive Date: 20150205
  Receipt Date: 20150430
  Transmission Date: 20150821
  Serious: Yes (Life-Threatening, Hospitalization)
  Sender: FDA-Public Use
  Company Number: CA-ROCHE-1533096

PATIENT
  Age: 41 Year
  Sex: Male

DRUGS (14)
  1. TETRACYCLINE [Concomitant]
     Active Substance: TETRACYCLINE
  2. CIPROFLOXACIN. [Concomitant]
     Active Substance: CIPROFLOXACIN
  3. MEROPENEM. [Concomitant]
     Active Substance: MEROPENEM
  4. XOLAIR [Suspect]
     Active Substance: OMALIZUMAB
     Indication: BRONCHOPULMONARY ASPERGILLOSIS ALLERGIC
     Route: 058
  5. VANCOMYCINE [Concomitant]
     Active Substance: VANCOMYCIN
  6. TMP-SMX [Concomitant]
     Active Substance: SULFAMETHOXAZOLE\TRIMETHOPRIM
  7. PREDNISONE. [Concomitant]
     Active Substance: PREDNISONE
  8. SPORANOX [Concomitant]
     Active Substance: ITRACONAZOLE\SODIUM CHLORIDE
  9. CIPRO [Concomitant]
     Active Substance: CIPROFLOXACIN HYDROCHLORIDE
  10. PULMICORT TURBUHALER [Concomitant]
     Active Substance: BUDESONIDE
  11. PANCREATIC ENZYME [Concomitant]
  12. XOLAIR [Suspect]
     Active Substance: OMALIZUMAB
     Indication: ASTHMA
     Route: 058
     Dates: start: 20100727
  13. VENTOLIN [Concomitant]
     Active Substance: ALBUTEROL SULFATE
  14. XOLAIR [Suspect]
     Active Substance: OMALIZUMAB
     Route: 058
     Dates: end: 2015

REACTIONS (4)
  - Stevens-Johnson syndrome [Recovered/Resolved]
  - Toxic epidermal necrolysis [Unknown]
  - Superinfection [Unknown]
  - Dizziness [Unknown]

NARRATIVE: CASE EVENT DATE: 20140119
